FAERS Safety Report 9314888 (Version 1)
Quarter: 2013Q2

REPORT INFORMATION
  Report Type: Spontaneous
  Country: GB (occurrence: GB)
  Receive Date: 20130529
  Receipt Date: 20130529
  Transmission Date: 20140414
  Serious: Yes (Other)
  Sender: FDA-Public Use
  Company Number: GB-009507513-1305GBR014111

PATIENT
  Age: 71 Year
  Sex: Male
  Weight: 74.6 kg

DRUGS (6)
  1. LOSARTAN POTASSIUM [Suspect]
     Dosage: UNK
     Route: 048
     Dates: start: 20130117
  2. AMLODIPINE [Concomitant]
     Dosage: UNK
     Dates: start: 20130117
  3. BENDROFLUMETHIAZIDE [Concomitant]
     Dosage: UNK
     Dates: start: 20130117
  4. ACETAMINOPHEN [Concomitant]
     Dosage: UNK
     Dates: start: 20130117
  5. PRAVASTATIN SODIUM [Concomitant]
     Dosage: UNK
     Dates: start: 20130117
  6. SILDENAFIL CITRATE [Concomitant]
     Dosage: UNK
     Dates: start: 20130117, end: 20130214

REACTIONS (2)
  - Pollakiuria [Unknown]
  - Erectile dysfunction [Recovering/Resolving]
